FAERS Safety Report 6253312 (Version 4)
Quarter: 2020Q3

REPORT INFORMATION
  Report Type: Report from Study
  Country: US (occurrence: US)
  Receive Date: 20070305
  Receipt Date: 20081209
  Transmission Date: 20201104
  Serious: Yes (Hospitalization)
  Sender: FDA-Public Use
  Company Number: US-JNJFOC-20070205245

PATIENT
  Age: 43 Year
  Sex: Male
  Weight: 73.48 kg

DRUGS (35)
  1. PLAVIX [Concomitant]
     Active Substance: CLOPIDOGREL BISULFATE
     Indication: PROPHYLAXIS
     Route: 048
  2. QUININE SULFATE. [Concomitant]
     Active Substance: QUININE SULFATE
     Route: 048
  3. DARUNAVIR [Suspect]
     Active Substance: DARUNAVIR
     Route: 048
  4. OXANDRIN [Concomitant]
     Active Substance: OXANDROLONE
     Indication: WEIGHT INCREASED
     Route: 048
  5. REQUIP [Concomitant]
     Active Substance: ROPINIROLE HYDROCHLORIDE
     Indication: RESTLESS LEGS SYNDROME
     Route: 048
  6. NIASPAN [Concomitant]
     Active Substance: NIACIN
     Indication: BLOOD CHOLESTEROL INCREASED
     Route: 048
  7. LOMOTIL [Concomitant]
     Active Substance: ATROPINE SULFATE\DIPHENOXYLATE HYDROCHLORIDE
     Indication: DIARRHOEA
     Dosage: STARTED PRE?TRIAL
     Route: 048
  8. CICLOPIROX. [Concomitant]
     Active Substance: CICLOPIROX
     Indication: ONYCHOMYCOSIS
     Route: 061
  9. ETRAVIRINE [Suspect]
     Active Substance: ETRAVIRINE
     Route: 048
  10. COMBIVIR [Concomitant]
     Active Substance: LAMIVUDINE\ZIDOVUDINE
     Indication: HIV INFECTION
     Route: 048
  11. ACYCLOVIR. [Concomitant]
     Active Substance: ACYCLOVIR
     Indication: ANTIVIRAL PROPHYLAXIS
     Dosage: STARTED PRE?TRIAL
     Route: 048
  12. DECA?DURABOLIN [Concomitant]
     Active Substance: NANDROLONE DECANOATE
     Indication: ASTHENIA
     Dosage: STARTED PRE?TRIAL
     Route: 030
  13. AVANDIA [Concomitant]
     Active Substance: ROSIGLITAZONE MALEATE
     Indication: BLOOD INSULIN ABNORMAL
     Dosage: STARTED PRE?TRIAL
     Route: 048
  14. HUMALOG [Concomitant]
     Active Substance: INSULIN LISPRO
     Indication: BLOOD INSULIN
     Dosage: STARTED PRE?TRIAL
     Route: 058
  15. EFFEXOR [Concomitant]
     Active Substance: VENLAFAXINE HYDROCHLORIDE
     Indication: DEPRESSION
     Route: 048
  16. ETRAVIRINE [Suspect]
     Active Substance: ETRAVIRINE
     Indication: HIV INFECTION
     Route: 048
  17. WELLBUTRIN [Concomitant]
     Active Substance: BUPROPION HYDROCHLORIDE
     Indication: DEPRESSION
     Dosage: STARTED PRE?TRIAL
     Route: 048
  18. LIPITOR [Concomitant]
     Active Substance: ATORVASTATIN CALCIUM
     Indication: PROPHYLAXIS
     Route: 048
  19. DARUNAVIR [Suspect]
     Active Substance: DARUNAVIR
     Indication: HIV INFECTION
     Route: 048
  20. DELATESTRYL [Concomitant]
     Active Substance: TESTOSTERONE ENANTHATE
     Indication: HORMONE THERAPY
     Dosage: STARTED PRE?TRIAL
     Route: 030
  21. WELLBUTRIN [Concomitant]
     Active Substance: BUPROPION HYDROCHLORIDE
     Indication: ANXIETY
     Route: 048
  22. ASPIRIN. [Concomitant]
     Active Substance: ASPIRIN
     Indication: ANTICOAGULANT THERAPY
     Dosage: STARTED PRE?TRIAL
     Route: 048
  23. CLONAZEPAM. [Concomitant]
     Active Substance: CLONAZEPAM
     Indication: INSOMNIA
     Dosage: STARTED PRE?TRIAL
     Route: 048
  24. CLOTRIMAZOLE. [Concomitant]
     Active Substance: CLOTRIMAZOLE
     Indication: ANTIFUNGAL PROPHYLAXIS
     Dosage: STARTED PRE?TRIAL
     Route: 048
  25. LANTUS [Concomitant]
     Active Substance: INSULIN GLARGINE
     Indication: BLOOD GLUCOSE INCREASED
     Route: 058
  26. TOPROL XL [Concomitant]
     Active Substance: METOPROLOL SUCCINATE
     Indication: PROPHYLAXIS
     Route: 048
  27. EFFEXOR [Concomitant]
     Active Substance: VENLAFAXINE HYDROCHLORIDE
     Indication: ANXIETY
     Route: 048
  28. FUZEON [Concomitant]
     Active Substance: ENFUVIRTIDE
     Indication: HIV INFECTION
     Route: 058
  29. RANITIDINE. [Concomitant]
     Active Substance: RANITIDINE
     Indication: GASTROOESOPHAGEAL REFLUX DISEASE
     Dosage: STARTED PRE?TRIAL
     Route: 048
  30. LUNESTRA [Concomitant]
     Indication: INSOMNIA
     Dosage: STARTED PRE?TRIAL
     Route: 048
  31. BACTRIM DS [Concomitant]
     Active Substance: SULFAMETHOXAZOLE\TRIMETHOPRIM
     Indication: ANTIFUNGAL PROPHYLAXIS
     Route: 048
  32. BENAZEPRIL [Concomitant]
     Active Substance: BENAZEPRIL HYDROCHLORIDE
     Indication: PROPHYLAXIS
     Route: 048
  33. RITONAVIR. [Suspect]
     Active Substance: RITONAVIR
     Indication: HIV INFECTION
     Route: 048
  34. LIPRAM [Concomitant]
     Indication: DYSPEPSIA
     Dosage: STARTED PRE?TRIAL
     Route: 048
  35. CIALIS [Concomitant]
     Active Substance: TADALAFIL
     Indication: ERECTILE DYSFUNCTION
     Dosage: STARTED PRE?TRIAL
     Route: 048

REACTIONS (1)
  - Coronary arterial stent insertion [Recovered/Resolved]

NARRATIVE: CASE EVENT DATE: 20070129
